FAERS Safety Report 4583716-6 (Version None)
Quarter: 2005Q1

REPORT INFORMATION
  Report Type: 
  Country: None (occurrence: None)
  Receive Date: 20050125
  Receipt Date: 20041007
  Transmission Date: 20050727
  Serious: No
  Sender: FDA-Public Use
  Company Number: USA041080504

PATIENT
  Age: 56 Year
  Sex: Female
  Weight: 51 kg

DRUGS (6)
  1. FORTEO [Suspect]
     Indication: BONE DISORDER
     Dosage: 20 UG/1 DAY
     Dates: start: 20041006
  2. EVISTA [Suspect]
     Indication: BONE DISORDER
     Dates: start: 19990101
  3. FOSAMAX [Concomitant]
  4. CELEBREX [Concomitant]
  5. CALCIUM GLUCONATE [Concomitant]
  6. LIQUID CALCIUM [Concomitant]

REACTIONS (2)
  - ARTHRALGIA [None]
  - GAIT DISTURBANCE [None]
